FAERS Safety Report 15783371 (Version 1)
Quarter: 2019Q1

REPORT INFORMATION
  Report Type: Report from Study
  Country: IT (occurrence: IT)
  Receive Date: 20190102
  Receipt Date: 20190102
  Transmission Date: 20190417
  Serious: Yes (Other)
  Sender: FDA-Public Use
  Company Number: IT-TEVA-2018-IT-993251

PATIENT
  Age: 69 Year
  Sex: Female

DRUGS (1)
  1. LETROZOLO TEVA [Suspect]
     Active Substance: LETROZOLE
     Route: 065

REACTIONS (4)
  - Migraine [Unknown]
  - Hypothermia [Unknown]
  - Decreased appetite [Unknown]
  - Nausea [Unknown]
